FAERS Safety Report 18325121 (Version 2)
Quarter: 2020Q4

REPORT INFORMATION
  Report Type: Report from Study
  Country: US (occurrence: US)
  Receive Date: 20200928
  Receipt Date: 20201117
  Transmission Date: 20210113
  Serious: Yes (Hospitalization)
  Sender: FDA-Public Use
  Company Number: US-UCBSA-2020038475

PATIENT
  Sex: Male

DRUGS (3)
  1. LACOSAMIDE. [Suspect]
     Active Substance: LACOSAMIDE
     Indication: SEIZURE
     Dosage: 200 MILLIGRAM, 2X/DAY (BID)
     Route: 048
  2. BRIVIACT [Suspect]
     Active Substance: BRIVARACETAM
     Indication: EPILEPSY
     Dosage: 50 MILLIGRAM, 2X/DAY (BID)
     Dates: start: 202009
  3. LACOSAMIDE. [Suspect]
     Active Substance: LACOSAMIDE
     Indication: EPILEPSY

REACTIONS (3)
  - Head injury [Unknown]
  - Hospitalisation [Unknown]
  - Seizure [Unknown]

NARRATIVE: CASE EVENT DATE: 2020
